FAERS Safety Report 20877254 (Version 1)
Quarter: 2022Q2

REPORT INFORMATION
  Report Type: Spontaneous
  Country: US (occurrence: None)
  Receive Date: 20220526
  Receipt Date: 20220526
  Transmission Date: 20220721
  Serious: Yes (Hospitalization)
  Sender: FDA-Public Use
  Company Number: None

PATIENT
  Age: 79 Year
  Sex: Male
  Weight: 95 kg

DRUGS (1)
  1. TRIHEXYPHENIDYL [Suspect]
     Active Substance: TRIHEXYPHENIDYL

REACTIONS (7)
  - Asthenia [None]
  - Fall [None]
  - Dysstasia [None]
  - Confusional state [None]
  - Hallucination [None]
  - Delirium [None]
  - Disorientation [None]

NARRATIVE: CASE EVENT DATE: 20220317
